FAERS Safety Report 20203308 (Version 3)
Quarter: 2022Q2

REPORT INFORMATION
  Report Type: Report from Study
  Country: US (occurrence: US)
  Receive Date: 20211218
  Receipt Date: 20220510
  Transmission Date: 20220721
  Serious: Yes (Other)
  Sender: FDA-Public Use
  Company Number: US-ABBVIE-21K-163-4159780-00

PATIENT
  Sex: Male

DRUGS (10)
  1. RINVOQ [Suspect]
     Active Substance: UPADACITINIB
     Indication: Rheumatoid arthritis
     Route: 048
  2. RINVOQ [Suspect]
     Active Substance: UPADACITINIB
     Route: 048
     Dates: start: 202006, end: 202107
  3. RINVOQ [Suspect]
     Active Substance: UPADACITINIB
     Route: 048
     Dates: start: 202107, end: 20211102
  4. RINVOQ [Suspect]
     Active Substance: UPADACITINIB
     Route: 048
     Dates: start: 20211206
  5. RINVOQ [Suspect]
     Active Substance: UPADACITINIB
     Route: 048
  6. RINVOQ [Suspect]
     Active Substance: UPADACITINIB
     Route: 048
  7. OMEPRAZOLE [Concomitant]
     Active Substance: OMEPRAZOLE
     Indication: Gastric disorder
     Route: 048
  8. PEPTO-BISMOL [Concomitant]
     Active Substance: BISMUTH SUBSALICYLATE
     Indication: Diarrhoea
  9. DIETARY SUPPLEMENT\HERBALS\MILK THISTLE [Concomitant]
     Active Substance: DIETARY SUPPLEMENT\HERBALS\MILK THISTLE
     Indication: Liver disorder
  10. CRANBERRY + BUCHU [Concomitant]
     Indication: Liver disorder

REACTIONS (10)
  - COVID-19 [Recovered/Resolved]
  - Food poisoning [Recovered/Resolved]
  - Hepatic enzyme increased [Recovered/Resolved]
  - Respiratory disorder [Not Recovered/Not Resolved]
  - Anosmia [Not Recovered/Not Resolved]
  - Asthenia [Recovered/Resolved]
  - Diarrhoea [Recovered/Resolved]
  - Off label use [Unknown]
  - Blood pressure increased [Not Recovered/Not Resolved]
  - COVID-19 [Recovered/Resolved]

NARRATIVE: CASE EVENT DATE: 20210101
